FAERS Safety Report 8096449-9 (Version None)
Quarter: 2012Q1

REPORT INFORMATION
  Report Type: 
  Country: None (occurrence: None)
  Receive Date: 20120129
  Receipt Date: 20111214
  Transmission Date: 20120608
  Serious: No
  Sender: FDA-Public Use
  Company Number: US-ABBOTT-11P-163-0883112-00

PATIENT
  Sex: Female

DRUGS (7)
  1. HUMIRA [Suspect]
     Indication: RHEUMATOID ARTHRITIS
     Route: 058
     Dates: end: 20111001
  2. LORTAB [Concomitant]
     Indication: PAIN
  3. MORPHINE [Concomitant]
     Indication: RHEUMATOID ARTHRITIS
  4. HUMIRA [Suspect]
     Route: 058
     Dates: start: 20111001
  5. CYMBALTA [Concomitant]
     Indication: PRODUCT USED FOR UNKNOWN INDICATION
  6. LORTAB [Concomitant]
     Indication: RHEUMATOID ARTHRITIS
  7. MORPHINE [Concomitant]
     Indication: PAIN

REACTIONS (3)
  - JOINT SWELLING [None]
  - ARTHRALGIA [None]
  - DRUG EFFECT DECREASED [None]
